FAERS Safety Report 18240531 (Version 1)
Quarter: 2020Q3

REPORT INFORMATION
  Report Type: Spontaneous
  Country: US (occurrence: US)
  Receive Date: 20200904
  Receipt Date: 20200904
  Transmission Date: 20201103
  Serious: Yes (Other)
  Sender: FDA-Public Use
  Company Number: None

PATIENT
  Age: 11 Year
  Sex: Male
  Weight: 58.6 kg

DRUGS (5)
  1. FLUTICASONE MDI [Concomitant]
  2. MONTELUKAST [Suspect]
     Active Substance: MONTELUKAST SODIUM
     Indication: ASTHMA
     Route: 048
     Dates: end: 20200902
  3. OLOPATADINE EYE DROPS [Concomitant]
     Active Substance: OLOPATADINE
  4. LORATADINE. [Concomitant]
     Active Substance: LORATADINE
  5. ALBUTEROL MDI [Concomitant]
     Active Substance: ALBUTEROL

REACTIONS (1)
  - Suicidal ideation [None]

NARRATIVE: CASE EVENT DATE: 20200901
